FAERS Safety Report 21677787 (Version 4)
Quarter: 2023Q1

REPORT INFORMATION
  Report Type: Report from Study
  Country: US (occurrence: US)
  Receive Date: 20221203
  Receipt Date: 20230127
  Transmission Date: 20230418
  Serious: No
  Sender: FDA-Public Use
  Company Number: US-002147023-NVSC2022US280440

PATIENT
  Sex: Female

DRUGS (1)
  1. COSENTYX [Suspect]
     Active Substance: SECUKINUMAB
     Indication: Psoriasis
     Dosage: 300 MG, QMO
     Route: 058
     Dates: start: 20220913

REACTIONS (5)
  - COVID-19 [Recovering/Resolving]
  - Asthenia [Unknown]
  - Arthralgia [Unknown]
  - Oral herpes [Not Recovered/Not Resolved]
  - Product dose omission issue [Unknown]
